FAERS Safety Report 16946515 (Version 2)
Quarter: 2020Q1

REPORT INFORMATION
  Report Type: Spontaneous
  Country: GB (occurrence: GB)
  Receive Date: 20191022
  Receipt Date: 20200210
  Transmission Date: 20200409
  Serious: Yes (Disabling)
  Sender: FDA-Public Use
  Company Number: GB-MYLANLABS-2019M1099569

PATIENT
  Age: 60 Year
  Sex: Female
  Weight: 103 kg

DRUGS (9)
  1. SALBUTAMOL [Concomitant]
     Active Substance: ALBUTEROL
     Dosage: 1-2 PUFFS EVERY 4 HOURS
     Route: 055
     Dates: start: 20190328
  2. CLENIL MODULITE [Concomitant]
     Active Substance: BECLOMETHASONE DIPROPIONATE
     Dosage: 4 DOSAGE FORM, QD
     Route: 055
     Dates: start: 20190328
  3. ESCITALOPRAM [Concomitant]
     Active Substance: ESCITALOPRAM OXALATE
     Dosage: 1 DOSAGE FORM, QD (MORNING)
     Dates: start: 20190328, end: 20190902
  4. TIBOLONE [Concomitant]
     Active Substance: TIBOLONE
     Dosage: 1 DOSAGE FORM, QD
     Dates: start: 20190328
  5. MIRTAZAPINE. [Suspect]
     Active Substance: MIRTAZAPINE
     Indication: PRODUCT USED FOR UNKNOWN INDICATION
     Dosage: 30 MILLIGRAM, QD (NIGHT)
     Dates: start: 20190902, end: 20190903
  6. CITALOPRAM [Concomitant]
     Active Substance: CITALOPRAM HYDROBROMIDE
     Dosage: 1 DF, QD (MORNING, WHILST ESCITALOPRAM 10MG WAS UNAVAILABLE, THIS WAS AN EQUIVALANT DOSE)
     Dates: start: 20190806
  7. DIAZEPAM. [Concomitant]
     Active Substance: DIAZEPAM
     Dosage: 1 UP TO 3TIMES DAILY WHEN REQUIRED
     Dates: start: 20190709, end: 20190716
  8. ZOPICLONE [Concomitant]
     Active Substance: ZOPICLONE
     Dosage: TAKE ONE OR TWO AT NIGHT
     Dates: start: 20190709, end: 20190723
  9. DIAZEPAM. [Concomitant]
     Active Substance: DIAZEPAM
     Dosage: 1 DF, TID (WHEN REQUIRED)
     Dates: start: 20190709, end: 20190716

REACTIONS (2)
  - Musculoskeletal stiffness [Recovered/Resolved]
  - Myalgia [Recovered/Resolved]

NARRATIVE: CASE EVENT DATE: 20190903
